FAERS Safety Report 23288820 (Version 4)
Quarter: 2024Q1

REPORT INFORMATION
  Report Type: Spontaneous
  Country: US (occurrence: US)
  Receive Date: 20231212
  Receipt Date: 20240301
  Transmission Date: 20240409
  Serious: Yes (Other)
  Sender: FDA-Public Use
  Company Number: US-SA-SAC20231206000816

PATIENT
  Age: 16 Year
  Sex: Female

DRUGS (1)
  1. DUPIXENT [Suspect]
     Active Substance: DUPILUMAB
     Indication: Dermatitis atopic
     Dosage: 200 MG, QOW
     Route: 058
     Dates: start: 20230904, end: 202312

REACTIONS (7)
  - Neuropathy peripheral [Unknown]
  - Petechiae [Unknown]
  - Joint swelling [Unknown]
  - Weight decreased [Unknown]
  - Skin disorder [Unknown]
  - Oropharyngeal pain [Unknown]
  - Papule [Unknown]

NARRATIVE: CASE EVENT DATE: 20230101
